FAERS Safety Report 13669873 (Version 1)
Quarter: 2017Q2

REPORT INFORMATION
  Report Type: Spontaneous
  Country: US (occurrence: US)
  Receive Date: 20170620
  Receipt Date: 20170620
  Transmission Date: 20170830
  Serious: Yes (Other)
  Sender: FDA-Public Use
  Company Number: US-JNJFOC-20170606496

PATIENT
  Age: 14 Year
  Sex: Female

DRUGS (1)
  1. DOXORUBICIN HYDROCHLORIDE. [Suspect]
     Active Substance: DOXORUBICIN HYDROCHLORIDE
     Indication: FIBROMATOSIS
     Route: 042

REACTIONS (8)
  - Rash pruritic [Unknown]
  - Fatigue [Unknown]
  - Off label use [Unknown]
  - Nausea [Unknown]
  - Cardiotoxicity [Unknown]
  - Drug ineffective for unapproved indication [Unknown]
  - Mucosal inflammation [Unknown]
  - Vomiting [Unknown]
